FAERS Safety Report 5913224-9 (Version None)
Quarter: 2008Q4

REPORT INFORMATION
  Report Type: 
  Country: None (occurrence: None)
  Receive Date: 20081009
  Receipt Date: 20081001
  Transmission Date: 20090506
  Serious: Yes (Death, Hospitalization)
  Sender: FDA-Public Use
  Company Number: IT-BAYER-200818974GPV

PATIENT
  Age: 74 Year
  Sex: Female
  Weight: 42 kg

DRUGS (17)
  1. SORAFENIB [Suspect]
     Indication: NON-SMALL CELL LUNG CANCER
     Dosage: TOTAL DAILY DOSE: 800 MG
     Route: 048
     Dates: start: 20080508, end: 20080703
  2. GEMCITABINE [Suspect]
     Indication: NON-SMALL CELL LUNG CANCER
     Route: 042
     Dates: start: 20080508, end: 20080508
  3. GEMCITABINE [Suspect]
     Route: 042
     Dates: start: 20080515, end: 20080515
  4. GEMCITABINE [Suspect]
     Route: 042
     Dates: start: 20080529, end: 20080529
  5. GEMCITABINE [Suspect]
     Route: 042
     Dates: start: 20080626, end: 20080626
  6. GEMCITABINE [Suspect]
     Route: 042
     Dates: start: 20080619, end: 20080619
  7. LIMPIDEX [Concomitant]
     Indication: PROPHYLAXIS
     Route: 048
     Dates: start: 20000101, end: 20080720
  8. ZANEDIP [Concomitant]
     Indication: HYPERTENSION
     Route: 048
     Dates: start: 20000101, end: 20080720
  9. LEVOPRAID [Concomitant]
     Indication: NAUSEA
     Route: 065
  10. ASPIRIN [Concomitant]
     Indication: HYPERTENSION
     Route: 048
     Dates: start: 20000101, end: 20080720
  11. CARDIAZOL-PARACODINA [Concomitant]
     Indication: COUGH
     Route: 048
     Dates: start: 20080301, end: 20080720
  12. TALOFEN [Concomitant]
     Indication: DEPRESSION
     Route: 048
     Dates: start: 20000101, end: 20080720
  13. TRIASPORIN [Concomitant]
     Indication: FUNGAL INFECTION
     Route: 048
     Dates: start: 20080301, end: 20080720
  14. EFFERALGAN [PARACETAMOL] [Concomitant]
     Indication: PAIN
     Route: 048
     Dates: start: 20080301
  15. SYNACTHEN DEPOT [Concomitant]
     Indication: ASTHENIA
     Route: 030
     Dates: start: 20080401, end: 20080720
  16. CLEXANE [Concomitant]
     Indication: THROMBOSIS PROPHYLAXIS
     Route: 058
     Dates: start: 20070101, end: 20080720
  17. TACHIDOL [Concomitant]
     Indication: PAIN
     Route: 048
     Dates: start: 20080701, end: 20080720

REACTIONS (6)
  - ASTHENIA [None]
  - GENERAL PHYSICAL HEALTH DETERIORATION [None]
  - HAEMORRHOIDS [None]
  - HYPOKALAEMIA [None]
  - PROCTALGIA [None]
  - RECTAL TENESMUS [None]
